FAERS Safety Report 8889799 (Version 3)
Quarter: 2013Q2

REPORT INFORMATION
  Report Type: Spontaneous
  Country: US (occurrence: US)
  Receive Date: 20121107
  Receipt Date: 20130606
  Transmission Date: 20140414
  Serious: Yes (Hospitalization)
  Sender: FDA-Public Use
  Company Number: US-BIOGENIDEC-2012BI050689

PATIENT
  Sex: Male

DRUGS (9)
  1. TYSABRI [Suspect]
     Indication: MULTIPLE SCLEROSIS
     Route: 042
     Dates: start: 20081008, end: 20110112
  2. TYSABRI [Suspect]
     Indication: MULTIPLE SCLEROSIS
     Route: 042
     Dates: start: 20111122
  3. TYSABRI [Suspect]
     Indication: MULTIPLE SCLEROSIS
     Route: 042
  4. ENDOCET [Concomitant]
     Indication: BACK PAIN
  5. ENDOCET [Concomitant]
     Indication: BACK PAIN
  6. LORAZEPAM [Concomitant]
  7. PERCOCET [Concomitant]
  8. BACLOFEN [Concomitant]
  9. LYRICA [Concomitant]

REACTIONS (3)
  - Morganella infection [Recovered/Resolved]
  - Calculus bladder [Unknown]
  - Nephrolithiasis [Recovered/Resolved]
